FAERS Safety Report 23233703 (Version 1)
Quarter: 2023Q4

REPORT INFORMATION
  Report Type: Report from Study
  Country: US (occurrence: US)
  Receive Date: 20231128
  Receipt Date: 20231128
  Transmission Date: 20240110
  Serious: Yes (Other)
  Sender: FDA-Public Use
  Company Number: US-UCBSA-2023030220

PATIENT
  Sex: Male
  Weight: 36 kg

DRUGS (2)
  1. FINTEPLA [Suspect]
     Active Substance: FENFLURAMINE
     Indication: Lennox-Gastaut syndrome
     Dosage: 1.5 MILLILITER, 2X/DAY (BID)
     Route: 048
     Dates: start: 20230420
  2. FINTEPLA [Suspect]
     Active Substance: FENFLURAMINE
     Indication: Severe myoclonic epilepsy of infancy
     Dosage: 0.1 MILLIGRAM/KILOGRAM/DAY TOTAL 6.6 MG/DAY
     Route: 048
     Dates: start: 2023, end: 20230525

REACTIONS (4)
  - Mitral valve incompetence [Not Recovered/Not Resolved]
  - Urinary tract infection [Recovered/Resolved]
  - Anxiety [Recovered/Resolved]
  - Panic attack [Recovered/Resolved]

NARRATIVE: CASE EVENT DATE: 20230101
